FAERS Safety Report 16744393 (Version 1)
Quarter: 2019Q3

REPORT INFORMATION
  Report Type: Spontaneous
  Country: CN (occurrence: CN)
  Receive Date: 20190827
  Receipt Date: 20190827
  Transmission Date: 20191005
  Serious: Yes (Other)
  Sender: FDA-Public Use
  Company Number: CN-ACCORD-153044

PATIENT
  Age: 55 Year
  Sex: Male

DRUGS (2)
  1. PREDNISONE. [Suspect]
     Active Substance: PREDNISONE
     Indication: CHRONIC GRAFT VERSUS HOST DISEASE
  2. TACROLIMUS. [Suspect]
     Active Substance: TACROLIMUS
     Indication: CHRONIC GRAFT VERSUS HOST DISEASE

REACTIONS (3)
  - Erythema multiforme [Recovered/Resolved]
  - Leukopenia [Recovered/Resolved]
  - Herpes simplex [Recovered/Resolved]
